FAERS Safety Report 6928070 (Version 20)
Quarter: 2013Q4

REPORT INFORMATION
  Report Type: Spontaneous
  Country: US (occurrence: US)
  Receive Date: 20090305
  Receipt Date: 20131018
  Transmission Date: 20140711
  Serious: Yes (Death, Hospitalization, Other)
  Sender: FDA-Public Use
  Company Number: PHEH2009US02019

PATIENT
  Age: 67 Year
  Sex: Male

DRUGS (50)
  1. PIOGLITAZONE [Concomitant]
  2. OLMESARTAN [Concomitant]
  3. LEVOTHYROXINE [Concomitant]
  4. SODIUM POLYSTYRENE SULFONATE [Concomitant]
  5. LANSOPRAZOLE [Concomitant]
  6. TENORMIN [Concomitant]
  7. TAGAMET [Concomitant]
  8. ERYTHROMYCIN [Concomitant]
  9. ZOMETA [Suspect]
     Indication: NEOPLASM MALIGNANT
     Dosage: 4 MG
     Dates: start: 200303, end: 2008
  10. INSULIN [Concomitant]
  11. GLIPIZIDE [Concomitant]
  12. ACTOS [Concomitant]
  13. FENTANYL [Concomitant]
  14. TRAZODONE [Concomitant]
  15. NORVASC [Concomitant]
  16. NEXIUM [Concomitant]
  17. GLUCOTROL [Concomitant]
  18. DILAUDID [Concomitant]
  19. SYNTHROID [Concomitant]
  20. BENICAR [Concomitant]
  21. TESTIM [Concomitant]
  22. ZOLOFT (SERTRALINE HYDROCHLORIDE) [Concomitant]
  23. LEXAPRO [Concomitant]
  24. SUTENT [Concomitant]
     Dates: end: 200803
  25. VICODIN [Concomitant]
  26. DEMEROL [Concomitant]
  27. VISTARIL [Concomitant]
  28. DARVOCET-N [Concomitant]
  29. LABETALOL [Concomitant]
  30. CEFAZOLIN [Concomitant]
  31. HEPARIN SODIUM [Concomitant]
  32. METOPROLOL [Concomitant]
  33. BENAZEPRIL [Concomitant]
  34. FLUOXETINE [Concomitant]
  35. MEPERIDINE HYDROCHLORIDE [Concomitant]
  36. DOCUSATE SODIUM [Concomitant]
  37. METOCLOPRAMIDE [Concomitant]
  38. MIDAZOLAM [Concomitant]
  39. DIPHENHYDRAMINE [Concomitant]
  40. LIDOCAINE [Concomitant]
  41. PROPOFOL [Concomitant]
  42. DEXAMETHASONE [Concomitant]
  43. PHENYLEPHRINE [Concomitant]
  44. ONDANSETRON [Concomitant]
  45. ESMOLOL [Concomitant]
  46. NEOSTIGMINE [Concomitant]
  47. GLYCOPYRROLATE [Concomitant]
  48. LOTENSIN [Concomitant]
  49. ACIPHEX [Concomitant]
  50. METFORMIN [Concomitant]

REACTIONS (107)
  - Respiratory failure [Fatal]
  - Renal cell carcinoma [Fatal]
  - Intestinal obstruction [Unknown]
  - Small intestinal obstruction [Unknown]
  - Malignant neoplasm progression [Unknown]
  - Metastases to neck [Unknown]
  - Metastases to bone [Unknown]
  - Metastases to lung [Unknown]
  - Metastases to liver [Unknown]
  - Lymphadenopathy [Recovering/Resolving]
  - Lymphadenopathy mediastinal [Recovering/Resolving]
  - Metastases to adrenals [Unknown]
  - Pulmonary mass [Unknown]
  - Sinusitis [Unknown]
  - Osteonecrosis of jaw [Unknown]
  - Pain [Unknown]
  - Discomfort [Unknown]
  - Oroantral fistula [Unknown]
  - Primary sequestrum [Unknown]
  - Deformity [Unknown]
  - Dysphagia [Unknown]
  - Osteoarthritis [Unknown]
  - Blood glucose increased [Unknown]
  - Spinal osteoarthritis [Unknown]
  - Abdominal pain [Unknown]
  - Diarrhoea [Unknown]
  - Nausea [Unknown]
  - Vomiting [Unknown]
  - Neck pain [Unknown]
  - Headache [Unknown]
  - Fatigue [Unknown]
  - Pollakiuria [Unknown]
  - Dehydration [Unknown]
  - Asthenia [Unknown]
  - Pleural effusion [Unknown]
  - Suicidal ideation [Unknown]
  - Depressed mood [Unknown]
  - Agitation [Unknown]
  - Irritability [Unknown]
  - Insomnia [Unknown]
  - Blood glucose abnormal [Unknown]
  - Sinus tachycardia [Unknown]
  - Sinus rhythm [Unknown]
  - Constipation [Unknown]
  - Oxygen saturation decreased [Unknown]
  - White blood cell count increased [Unknown]
  - Mean cell haemoglobin concentration increased [Unknown]
  - Large intestine polyp [Unknown]
  - Abdominal discomfort [Unknown]
  - Erectile dysfunction [Unknown]
  - Diverticulum [Unknown]
  - Chest discomfort [Unknown]
  - Angina pectoris [Unknown]
  - Musculoskeletal pain [Unknown]
  - Actinic keratosis [Unknown]
  - Dermatitis contact [Unknown]
  - Muscle atrophy [Unknown]
  - Anxiety [Unknown]
  - Presbyacusis [Unknown]
  - Tooth abscess [Unknown]
  - Bronchitis [Unknown]
  - Diabetes mellitus [Unknown]
  - Nephrolithiasis [Unknown]
  - Arteriosclerosis coronary artery [Unknown]
  - Tinea cruris [Unknown]
  - Cerebral atrophy [Unknown]
  - Fluid retention [Unknown]
  - Pulmonary fibrosis [Unknown]
  - Pericardial effusion [Unknown]
  - Purulence [Unknown]
  - Arrhythmia [Unknown]
  - Rash erythematous [Unknown]
  - Cholelithiasis [Unknown]
  - Prostate cancer stage IV [Unknown]
  - Cholecystitis chronic [Unknown]
  - Atelectasis [Unknown]
  - Pulmonary oedema [Unknown]
  - Oedema [Unknown]
  - Dyspnoea [Unknown]
  - Haemorrhoids [Unknown]
  - Gastritis [Unknown]
  - Skin induration [Unknown]
  - Scrotal mass [Unknown]
  - Hydrocele [Unknown]
  - Scrotal pain [Unknown]
  - Scrotal swelling [Unknown]
  - Renal cyst [Unknown]
  - Sinus polyp [Unknown]
  - Nasal turbinate hypertrophy [Unknown]
  - Carotid arteriosclerosis [Unknown]
  - Vascular calcification [Unknown]
  - Nasal septum deviation [Unknown]
  - Sinus disorder [Unknown]
  - Pulmonary calcification [Unknown]
  - Pulmonary granuloma [Unknown]
  - Intervertebral disc degeneration [Unknown]
  - Back pain [Unknown]
  - Vertebral osteophyte [Unknown]
  - Biliary colic [Unknown]
  - Pain in jaw [Unknown]
  - Metastases to skin [Unknown]
  - Metastases to lymph nodes [Unknown]
  - Diplopia [Unknown]
  - Mitral valve incompetence [Unknown]
  - Tricuspid valve incompetence [Unknown]
  - Aortic calcification [Unknown]
  - Diverticulum intestinal [Unknown]
